FAERS Safety Report 12838872 (Version 1)
Quarter: 2016Q4

REPORT INFORMATION
  Report Type: Spontaneous
  Country: DE (occurrence: DE)
  Receive Date: 20161012
  Receipt Date: 20161012
  Transmission Date: 20170207
  Serious: Yes (Other)
  Sender: FDA-Public Use
  Company Number: DE-ROCHE-1834373

PATIENT
  Age: 75 Year
  Sex: Female
  Weight: 55 kg

DRUGS (6)
  1. VINCRISTINE [Concomitant]
     Active Substance: VINCRISTINE
     Indication: MANTLE CELL LYMPHOMA
     Route: 065
     Dates: start: 201509, end: 201602
  2. MABTHERA [Suspect]
     Active Substance: RITUXIMAB
     Indication: MANTLE CELL LYMPHOMA
     Dosage: MAINTENANCE THERAPY
     Route: 058
     Dates: start: 201605
  3. DOXORUBICIN [Concomitant]
     Active Substance: DOXORUBICIN
     Indication: MANTLE CELL LYMPHOMA
     Route: 065
     Dates: start: 201509, end: 201602
  4. PREDNISONE. [Concomitant]
     Active Substance: PREDNISONE
     Indication: MANTLE CELL LYMPHOMA
     Route: 065
     Dates: start: 201509, end: 201602
  5. MABTHERA [Suspect]
     Active Substance: RITUXIMAB
     Indication: MANTLE CELL LYMPHOMA
     Dosage: 8 ADMINISTRAIONS, R-CHOP REGIMEN
     Route: 042
     Dates: start: 201509, end: 201602
  6. CYCLOPHOSPHAMIDE. [Concomitant]
     Active Substance: CYCLOPHOSPHAMIDE
     Indication: MANTLE CELL LYMPHOMA
     Route: 065
     Dates: start: 201509, end: 201602

REACTIONS (1)
  - Glaucoma [Unknown]

NARRATIVE: CASE EVENT DATE: 201609
